FAERS Safety Report 9492859 (Version 7)
Quarter: 2015Q1

REPORT INFORMATION
  Report Type: Spontaneous
  Country: US (occurrence: US)
  Receive Date: 20130831
  Receipt Date: 20150216
  Transmission Date: 20150721
  Serious: Yes (Other)
  Sender: FDA-Public Use
  Company Number: US-GE HEALTHCARE MEDICAL DIAGNOSTICS-OSCN-PR-1307S-0063

PATIENT
  Age: 34 Year
  Sex: Female

DRUGS (46)
  1. MULTIHANCE [Suspect]
     Active Substance: GADOBENATE DIMEGLUMINE
     Indication: PAIN
     Route: 042
     Dates: start: 20070428, end: 20070428
  2. CLONIDINE. [Concomitant]
     Active Substance: CLONIDINE
  3. LOVASTATIN. [Concomitant]
     Active Substance: LOVASTATIN
  4. SENSIPAR [Concomitant]
     Active Substance: CINACALCET HYDROCHLORIDE
     Indication: BONE DISORDER
  5. ENALAPRIL [Concomitant]
     Active Substance: ENALAPRIL
  6. SODIUM BICARBONATE. [Concomitant]
     Active Substance: SODIUM BICARBONATE
  7. ASPIRIN. [Concomitant]
     Active Substance: ASPIRIN
  8. CLONAZEPAM. [Concomitant]
     Active Substance: CLONAZEPAM
  9. MULTIHANCE [Suspect]
     Active Substance: GADOBENATE DIMEGLUMINE
     Indication: SEIZURE
  10. VASOTEC [Concomitant]
     Active Substance: ENALAPRIL MALEATE
  11. RENAGEL [Concomitant]
     Active Substance: SEVELAMER HYDROCHLORIDE
  12. NEPHROCAPS [Concomitant]
     Active Substance: ASCORBIC ACID\BIOTIN\CYANOCOBALAMIN\FOLIC ACID\NIACIN\PANTOTHENIC ACID\PYRIDOXINE\RIBOFLAVIN\THIAMINE
  13. HECTOROL [Concomitant]
     Active Substance: DOXERCALCIFEROL
     Indication: BONE DISORDER
  14. OMNISCAN [Suspect]
     Active Substance: GADODIAMIDE
     Indication: ABDOMINAL PAIN
     Route: 042
     Dates: start: 20060802, end: 20060802
  15. OMNISCAN [Suspect]
     Active Substance: GADODIAMIDE
     Indication: DIAGNOSTIC PROCEDURE
  16. PROCARDIA [Concomitant]
     Active Substance: NIFEDIPINE
  17. NITROGLYCERIN. [Concomitant]
     Active Substance: NITROGLYCERIN
  18. PHOSLO [Concomitant]
     Active Substance: CALCIUM ACETATE
     Indication: BONE DISORDER
  19. COMBIVENT [Concomitant]
     Active Substance: ALBUTEROL SULFATE\IPRATROPIUM BROMIDE
  20. BUPROPION [Concomitant]
     Active Substance: BUPROPION
  21. PLAVIX [Concomitant]
     Active Substance: CLOPIDOGREL BISULFATE
  22. DIOVAN [Concomitant]
     Active Substance: VALSARTAN
  23. TYLOX [Concomitant]
     Active Substance: ACETAMINOPHEN\OXYCODONE HYDROCHLORIDE
  24. TUMS [Concomitant]
     Active Substance: CALCIUM CARBONATE
  25. DILANTIN [Concomitant]
     Active Substance: PHENYTOIN
  26. VITAMIN B COMPLEX [Concomitant]
     Active Substance: CYANOCOBALAMIN\DEXPANTHENOL\NIACINAMIDE\PYRIDOXINE HYDROCHLORIDE\RIBOFLAVIN 5^-PHOSPHATE SODIUM\THIAMINE HYDROCHLORIDE\VITAMIN B COMPLEX
  27. GABAPENTIN. [Concomitant]
     Active Substance: GABAPENTIN
  28. COUMADIN [Concomitant]
     Active Substance: WARFARIN SODIUM
     Indication: CARDIOVASCULAR DISORDER
  29. SINGULAIR [Concomitant]
     Active Substance: MONTELUKAST SODIUM
  30. LIPITOR [Concomitant]
     Active Substance: ATORVASTATIN CALCIUM
     Indication: CARDIOVASCULAR DISORDER
  31. OMNISCAN [Suspect]
     Active Substance: GADODIAMIDE
     Indication: INTESTINAL ISCHAEMIA
  32. MULTIHANCE [Suspect]
     Active Substance: GADOBENATE DIMEGLUMINE
     Indication: COMPRESSION FRACTURE
     Route: 042
     Dates: start: 20070913, end: 20070913
  33. EPOGEN [Concomitant]
     Active Substance: ERYTHROPOIETIN
     Indication: ANAEMIA
  34. ATORVASTATIN [Concomitant]
     Active Substance: ATORVASTATIN
  35. COLACE [Concomitant]
     Active Substance: DOCUSATE SODIUM
  36. LORATADINE. [Concomitant]
     Active Substance: LORATADINE
  37. FOSRENOL [Concomitant]
     Active Substance: LANTHANUM CARBONATE
  38. REGLAN [Concomitant]
     Active Substance: METOCLOPRAMIDE HYDROCHLORIDE
  39. ZOLOFT [Concomitant]
     Active Substance: SERTRALINE HYDROCHLORIDE
  40. NIFEDIPINE. [Concomitant]
     Active Substance: NIFEDIPINE
  41. LOPRESSOR [Concomitant]
     Active Substance: METOPROLOL TARTRATE
  42. VENOFER [Concomitant]
     Active Substance: IRON SUCROSE
  43. AMBIEN [Concomitant]
     Active Substance: ZOLPIDEM TARTRATE
  44. CALCIUM [Concomitant]
     Active Substance: CALCIUM
  45. RENVELA [Concomitant]
     Active Substance: SEVELAMER CARBONATE
     Indication: BONE DISORDER
  46. PHOSLYRA [Concomitant]
     Active Substance: CALCIUM ACETATE
     Indication: BONE DISORDER

REACTIONS (4)
  - Myositis [Not Recovered/Not Resolved]
  - Axonal neuropathy [Not Recovered/Not Resolved]
  - Nephrogenic systemic fibrosis [Not Recovered/Not Resolved]
  - Muscle spasms [Not Recovered/Not Resolved]

NARRATIVE: CASE EVENT DATE: 200609
